FAERS Safety Report 5213690-0 (Version None)
Quarter: 2007Q1

REPORT INFORMATION
  Report Type: 
  Country: None (occurrence: None)
  Receive Date: 20070119
  Receipt Date: 20070109
  Transmission Date: 20070707
  Serious: Yes (Other)
  Sender: FDA-Public Use
  Company Number: US-PFIZER INC-2007003391

PATIENT
  Sex: Male
  Weight: 65.8 kg

DRUGS (3)
  1. AZULFIDINE [Suspect]
     Indication: COLITIS ULCERATIVE
  2. PREDNISONE [Concomitant]
  3. VITAMINS [Concomitant]

REACTIONS (6)
  - ANOREXIA [None]
  - DYSGEUSIA [None]
  - NAUSEA [None]
  - STOMACH DISCOMFORT [None]
  - VISION BLURRED [None]
  - WEIGHT DECREASED [None]
